FAERS Safety Report 24912872 (Version 1)
Quarter: 2025Q1

REPORT INFORMATION
  Report Type: Spontaneous
  Country: US (occurrence: US)
  Receive Date: 20250201
  Receipt Date: 20250201
  Transmission Date: 20250408
  Serious: No
  Sender: GLENMARK
  Company Number: US-GLENMARK PHARMACEUTICALS-2024GMK095047

PATIENT

DRUGS (2)
  1. RYALTRIS [Suspect]
     Active Substance: MOMETASONE FUROATE MONOHYDRATE\OLOPATADINE HYDROCHLORIDE
     Indication: Nasal disorder
     Dosage: 1 DOSAGE FORM, BID, INSTILL 1 SPRAY INTO AFFECTED NOSTRIL(S) TWICE A DAY
     Route: 045
     Dates: start: 20240830
  2. RYALTRIS [Suspect]
     Active Substance: MOMETASONE FUROATE MONOHYDRATE\OLOPATADINE HYDROCHLORIDE
     Indication: Sinus disorder

REACTIONS (2)
  - Nausea [Unknown]
  - Drug effective for unapproved indication [Unknown]
